FAERS Safety Report 9415217 (Version 1)
Quarter: 2013Q3

REPORT INFORMATION
  Report Type: Report from Study
  Country: US (occurrence: US)
  Receive Date: 20130723
  Receipt Date: 20130723
  Transmission Date: 20140515
  Serious: Yes (Hospitalization)
  Sender: FDA-Public Use
  Company Number: PHEH2013US015554

PATIENT
  Sex: Female

DRUGS (1)
  1. AFINITOR [Suspect]
     Dosage: BID
     Route: 048
     Dates: start: 20130611

REACTIONS (4)
  - Gastrointestinal inflammation [Unknown]
  - Blood glucose fluctuation [Unknown]
  - Blood glucose increased [Unknown]
  - Diarrhoea [Unknown]
